FAERS Safety Report 20108084 (Version 2)
Quarter: 2021Q4

REPORT INFORMATION
  Report Type: Spontaneous
  Country: US (occurrence: US)
  Receive Date: 20211124
  Receipt Date: 20211130
  Transmission Date: 20220303
  Serious: No
  Sender: FDA-Public Use
  Company Number: US-Blueprint Medicines Corporation-SP-US-2021-001956

PATIENT
  Age: 67 Year
  Sex: Female

DRUGS (2)
  1. AYVAKIT [Suspect]
     Active Substance: AVAPRITINIB
     Indication: Systemic mastocytosis
     Route: 048
     Dates: start: 20211012
  2. AYVAKIT [Suspect]
     Active Substance: AVAPRITINIB
     Route: 048
     Dates: start: 20211012

REACTIONS (9)
  - Eye swelling [Recovering/Resolving]
  - Dysphonia [Unknown]
  - Nasal dryness [Unknown]
  - Irritability [Unknown]
  - Oropharyngeal pain [Unknown]
  - Agitation [Unknown]
  - Swelling face [Recovering/Resolving]
  - Fatigue [Unknown]
  - Nausea [Unknown]
